FAERS Safety Report 9272270 (Version 1)
Quarter: 2013Q2

REPORT INFORMATION
  Report Type: Spontaneous
  Country: US (occurrence: US)
  Receive Date: 20130506
  Receipt Date: 20130506
  Transmission Date: 20140414
  Serious: No
  Sender: FDA-Public Use
  Company Number: US-ASTRAZENECA-2013SE08850

PATIENT
  Age: 85 Year
  Sex: Female

DRUGS (5)
  1. PRILOSEC OTC, WILDBERRY FLAVOR [Suspect]
     Route: 048
     Dates: start: 20130104, end: 20130107
  2. ANTIHYPERTENSIVES [Concomitant]
  3. LISINOPRIL [Concomitant]
  4. AMLODIPINE [Concomitant]
  5. BABY ASPIRIN [Concomitant]

REACTIONS (3)
  - Dyspepsia [Recovered/Resolved]
  - Nausea [Recovered/Resolved]
  - Dysgeusia [Recovered/Resolved]
